FAERS Safety Report 14184583 (Version 1)
Quarter: 2017Q4

REPORT INFORMATION
  Report Type: Spontaneous
  Country: CN (occurrence: CN)
  Receive Date: 20171113
  Receipt Date: 20171113
  Transmission Date: 20180321
  Serious: Yes (Other)
  Sender: FDA-Public Use
  Company Number: CN-BAYER-2017-213901

PATIENT
  Sex: Female

DRUGS (2)
  1. DIANE (CYPROTERONE ACETATE\ETHINYL ESTRADIOL) [Suspect]
     Active Substance: CYPROTERONE ACETATE\ETHINYL ESTRADIOL
     Indication: POLYCYSTIC OVARIES
     Route: 048
  2. YASMIN [Suspect]
     Active Substance: DROSPIRENONE\ETHINYL ESTRADIOL
     Indication: MENSTRUAL CYCLE MANAGEMENT
     Dosage: UNK
     Route: 048

REACTIONS (5)
  - Haemorrhage in pregnancy [None]
  - Drug ineffective [None]
  - Pulmonary tuberculosis [None]
  - Pregnancy on oral contraceptive [None]
  - Product use in unapproved indication [None]

NARRATIVE: CASE EVENT DATE: 201711
